FAERS Safety Report 6676883-1 (Version None)
Quarter: 2010Q2

REPORT INFORMATION
  Report Type: 
  Country: None (occurrence: None)
  Receive Date: 20100409
  Receipt Date: 20100409
  Transmission Date: 20101027
  Serious: No
  Sender: FDA-Public Use
  Company Number: None

PATIENT
  Age: 47 Year
  Sex: Female
  Weight: 65.7716 kg

DRUGS (4)
  1. NUCYNTA [Suspect]
     Indication: BACK PAIN
     Dosage: 50 MG 1 EVERY 6 HRS
     Dates: start: 20100316, end: 20100317
  2. NUCYNTA [Suspect]
     Indication: NECK PAIN
     Dosage: 50 MG 1 EVERY 6 HRS
     Dates: start: 20100316, end: 20100317
  3. GABAPENTIN [Suspect]
     Indication: NERVE INJURY
     Dosage: 100 MG 1 2X A DAY
     Dates: start: 20100316, end: 20100317
  4. GABAPENTIN [Concomitant]

REACTIONS (11)
  - DIZZINESS [None]
  - DRY MOUTH [None]
  - HEART RATE DECREASED [None]
  - HYPERHIDROSIS [None]
  - HYPOVENTILATION [None]
  - INSOMNIA [None]
  - MUSCLE TWITCHING [None]
  - NAUSEA [None]
  - RESPIRATORY RATE DECREASED [None]
  - THROAT TIGHTNESS [None]
  - VOMITING [None]
